FAERS Safety Report 5588429-X (Version None)
Quarter: 2008Q1

REPORT INFORMATION
  Report Type: 
  Country: None (occurrence: None)
  Receive Date: 20080111
  Receipt Date: 20080104
  Transmission Date: 20080703
  Serious: Yes (Other)
  Sender: FDA-Public Use
  Company Number: DE-ASTRAZENECA-2008PK00027

PATIENT
  Age: 40 Year
  Sex: Female

DRUGS (1)
  1. ASCOTOP [Suspect]
     Indication: MIGRAINE
     Route: 048

REACTIONS (1)
  - PANCREATITIS RELAPSING [None]
